FAERS Safety Report 21134074 (Version 1)
Quarter: 2022Q3

REPORT INFORMATION
  Report Type: Report from Study
  Country: US (occurrence: US)
  Receive Date: 20220726
  Receipt Date: 20220726
  Transmission Date: 20221027
  Serious: Yes (Other)
  Sender: FDA-Public Use
  Company Number: US-ALLERGAN-2223126US

PATIENT
  Sex: Male
  Weight: 40 kg

DRUGS (1)
  1. SUCRALFATE [Suspect]
     Active Substance: SUCRALFATE
     Indication: Product used for unknown indication
     Dosage: 1 DF, QD
     Route: 048

REACTIONS (4)
  - Neoplasm malignant [Not Recovered/Not Resolved]
  - Pain [Not Recovered/Not Resolved]
  - Dyspepsia [Unknown]
  - Adverse event [Unknown]
